FAERS Safety Report 23898744 (Version 1)
Quarter: 2024Q2

REPORT INFORMATION
  Report Type: Spontaneous
  Country: MY (occurrence: MY)
  Receive Date: 20240525
  Receipt Date: 20240525
  Transmission Date: 20240715
  Serious: Yes (Other)
  Sender: FDA-Public Use
  Company Number: MY-HALEON-2175153

PATIENT
  Age: 3 Year
  Sex: Female

DRUGS (3)
  1. ACETAMINOPHEN [Suspect]
     Active Substance: ACETAMINOPHEN
     Indication: Vomiting
  2. DOMPERIDONE [Suspect]
     Active Substance: DOMPERIDONE
     Indication: Vomiting
  3. RANITIDINE [Suspect]
     Active Substance: RANITIDINE
     Indication: Vomiting

REACTIONS (2)
  - Epilepsy [Recovered/Resolved]
  - Staring [Recovered/Resolved]
